FAERS Safety Report 16536791 (Version 3)
Quarter: 2019Q3

REPORT INFORMATION
  Report Type: Spontaneous
  Country: ES (occurrence: ES)
  Receive Date: 20190706
  Receipt Date: 20190805
  Transmission Date: 20191004
  Serious: Yes (Hospitalization, Other)
  Sender: FDA-Public Use
  Company Number: ES-AMGEN-ESPSP2019105239

PATIENT
  Sex: Female

DRUGS (11)
  1. REVLIMID [Suspect]
     Active Substance: LENALIDOMIDE
     Indication: PLASMA CELL MYELOMA
     Dosage: UNK
     Route: 065
  2. KYPROLIS [Suspect]
     Active Substance: CARFILZOMIB
     Dosage: 27 MILLIGRAM/SQ. METER, DAYS 1 AND 15
     Route: 065
     Dates: start: 20181203
  3. DARATUMUMAB [Suspect]
     Active Substance: DARATUMUMAB
     Indication: PLASMA CELL MYELOMA
     Dosage: UNK
     Route: 065
     Dates: start: 201702, end: 2017
  4. KYPROLIS [Suspect]
     Active Substance: CARFILZOMIB
     Dosage: UNK (REDUCED DOSE)
     Route: 065
     Dates: start: 2017
  5. KYPROLIS [Suspect]
     Active Substance: CARFILZOMIB
     Dosage: UNK (BEGINING OF CYCLE 7)
     Route: 065
  6. DEXAMETHASONE. [Suspect]
     Active Substance: DEXAMETHASONE
     Indication: PLASMA CELL MYELOMA
     Dosage: UNK
     Route: 065
  7. REVLIMID [Suspect]
     Active Substance: LENALIDOMIDE
     Dosage: 10 MILLIGRAM OVER 21 DAYS
     Route: 065
     Dates: start: 20181203
  8. FILGRASTIM [Suspect]
     Active Substance: FILGRASTIM
     Indication: CYTOPENIA
     Dosage: UNK
     Route: 065
  9. KYPROLIS [Suspect]
     Active Substance: CARFILZOMIB
     Indication: PLASMA CELL MYELOMA
     Dosage: UNK
     Route: 065
     Dates: start: 201704, end: 2017
  10. REVLIMID [Suspect]
     Active Substance: LENALIDOMIDE
     Dosage: 15 MILLIGRAM, QD (REDUCED DOSE AT THE BEGINING OF CYCLE 7)
     Route: 065
  11. DEXAMETHASONE. [Suspect]
     Active Substance: DEXAMETHASONE
     Dosage: 20 MILLIGRAM, QWK
     Route: 065
     Dates: start: 20181203

REACTIONS (9)
  - Neutropenia [Recovered/Resolved]
  - Anaemia [Unknown]
  - Respiratory tract infection [Recovered/Resolved]
  - Thrombocytopenia [Unknown]
  - Upper respiratory tract infection [Recovered/Resolved]
  - Acute kidney injury [Recovered/Resolved]
  - Plasma cell myeloma [Unknown]
  - Deep vein thrombosis [Unknown]
  - Hypertensive crisis [Recovered/Resolved]

NARRATIVE: CASE EVENT DATE: 2017
